FAERS Safety Report 24771821 (Version 3)
Quarter: 2025Q1

REPORT INFORMATION
  Report Type: Report from Study
  Country: US (occurrence: US)
  Receive Date: 20241224
  Receipt Date: 20250312
  Transmission Date: 20250409
  Serious: Yes (Hospitalization, Other)
  Sender: GILEAD
  Company Number: US-GILEAD-2024-0697958

PATIENT
  Age: 60 Year
  Sex: Female

DRUGS (48)
  1. AZTREONAM LYSINE [Suspect]
     Active Substance: AZTREONAM LYSINE
     Indication: Cystic fibrosis lung
     Dosage: 75 MG, TID (INHALE ONE VIAL (75 MG) VIA NEBULIZER THREE TIMES DAILY CYCLE 28 DAYS ON, 28 DAYS OFF)
     Route: 055
     Dates: start: 20150421
  2. AZTREONAM LYSINE [Suspect]
     Active Substance: AZTREONAM LYSINE
     Indication: Cystic fibrosis
  3. VITAMIN D3 [Concomitant]
     Active Substance: CHOLECALCIFEROL
  4. LEVALBUTEROL HYDROCHLORIDE [Concomitant]
     Active Substance: LEVALBUTEROL HYDROCHLORIDE
  5. PULMOZYME [Concomitant]
     Active Substance: DORNASE ALFA
  6. CREON [Concomitant]
     Active Substance: PANCRELIPASE AMYLASE\PANCRELIPASE LIPASE\PANCRELIPASE PROTEASE
  7. TRIKAFTA [Concomitant]
     Active Substance: ELEXACAFTOR\IVACAFTOR\TEZACAFTOR
  8. TOBRAMYCIN [Concomitant]
     Active Substance: TOBRAMYCIN
  9. CALCIUM CITRATE + D3 [Concomitant]
  10. ADVAIR HFA [Concomitant]
     Active Substance: FLUTICASONE PROPIONATE\SALMETEROL XINAFOATE
  11. CODEINE [Concomitant]
     Active Substance: CODEINE
  12. BENTYL [Concomitant]
     Active Substance: DICYCLOMINE HYDROCHLORIDE
  13. BENZONATATE [Concomitant]
     Active Substance: BENZONATATE
  14. CALCIUM [Concomitant]
     Active Substance: CALCIUM
  15. CARAFATE [Concomitant]
     Active Substance: SUCRALFATE
  16. CLARITIN [Concomitant]
     Active Substance: LORATADINE
  17. CRESEMBA [Concomitant]
     Active Substance: ISAVUCONAZONIUM SULFATE
  18. CYCLOBENZAPRINE [Concomitant]
     Active Substance: CYCLOBENZAPRINE
  19. ELIQUIS [Concomitant]
     Active Substance: APIXABAN
  20. FAMOTIDINE [Concomitant]
     Active Substance: FAMOTIDINE
  21. MOMETASONE FUROATE [Concomitant]
     Active Substance: MOMETASONE FUROATE
  22. GUAIFENESIN [Concomitant]
     Active Substance: GUAIFENESIN
  23. LEVALBUTEROL [Concomitant]
     Active Substance: LEVALBUTEROL
  24. LEVAQUIN [Concomitant]
     Active Substance: LEVOFLOXACIN
  25. LORATADINE [Concomitant]
     Active Substance: LORATADINE
  26. MELATONIN [Concomitant]
     Active Substance: MELATONIN
  27. METAXALONE [Concomitant]
     Active Substance: METAXALONE
  28. MUCINEX [Concomitant]
     Active Substance: GUAIFENESIN
  29. OXYCOD [OXYTOCIN] [Concomitant]
  30. PANCREAZE [Concomitant]
     Active Substance: PANCRELIPASE AMYLASE\PANCRELIPASE LIPASE\PANCRELIPASE PROTEASE
  31. PANTOPRAZOLE [Concomitant]
     Active Substance: PANTOPRAZOLE
  32. PERCOCET [Concomitant]
     Active Substance: ACETAMINOPHEN\OXYCODONE HYDROCHLORIDE
  33. PREDNISONE [Concomitant]
     Active Substance: PREDNISONE
  34. PROCHLORPERAZINE MALEATE [Concomitant]
     Active Substance: PROCHLORPERAZINE MALEATE
  35. PROMETHAZINE [Concomitant]
     Active Substance: PROMETHAZINE HYDROCHLORIDE
  36. SODIUM CHLORIDE [Concomitant]
     Active Substance: SODIUM CHLORIDE
  37. ACID REDUCER [CIMETIDINE] [Concomitant]
  38. ZOLOFT [Concomitant]
     Active Substance: SERTRALINE HYDROCHLORIDE
  39. XIFAXAN [Concomitant]
     Active Substance: RIFAXIMIN
  40. URSODIOL [Concomitant]
     Active Substance: URSODIOL
  41. TRAZODONE [Concomitant]
     Active Substance: TRAZODONE HYDROCHLORIDE
  42. TRAMADOL [Concomitant]
     Active Substance: TRAMADOL
  43. TOPAMAX [Concomitant]
     Active Substance: TOPIRAMATE
  44. SODIUM CHLORIDE [Concomitant]
     Active Substance: SODIUM CHLORIDE
  45. SERTRALINE [Concomitant]
     Active Substance: SERTRALINE HYDROCHLORIDE
  46. SEROQUEL [Concomitant]
     Active Substance: QUETIAPINE FUMARATE
  47. PROCHLORPERAZINE [Concomitant]
     Active Substance: PROCHLORPERAZINE
  48. MINOCYCLINE [Concomitant]
     Active Substance: MINOCYCLINE HYDROCHLORIDE

REACTIONS (2)
  - Pneumonia [Recovered/Resolved]
  - Infective pulmonary exacerbation of cystic fibrosis [Unknown]

NARRATIVE: CASE EVENT DATE: 20241207
